FAERS Safety Report 7163492-3 (Version None)
Quarter: 2010Q4

REPORT INFORMATION
  Report Type: 
  Country: None (occurrence: None)
  Receive Date: 20101215
  Receipt Date: 20100428
  Transmission Date: 20110411
  Serious: Yes (Hospitalization)
  Sender: FDA-Public Use
  Company Number: FR-PFIZER INC-2010053369

PATIENT
  Age: 73 Year
  Sex: Female

DRUGS (6)
  1. LYRICA [Suspect]
     Dosage: 75 MG, 2X/DAY
     Route: 048
  2. NEURONTIN [Suspect]
     Dosage: 300 MG, 3X/DAY
     Route: 048
     Dates: end: 20091208
  3. FLUDEX [Suspect]
     Dosage: 1.5 MG
     Route: 048
     Dates: end: 20091208
  4. TEGRETOL [Suspect]
     Dosage: 200 MG, 3X/DAY
     Route: 048
     Dates: start: 20091101
  5. LEVOTHYROXINE SODIUM [Concomitant]
     Dosage: 27 GTT, 1X/DAY
  6. ATACAND [Concomitant]
     Dosage: UNK

REACTIONS (3)
  - HYPOCHLORAEMIA [None]
  - HYPOKALAEMIA [None]
  - HYPONATRAEMIA [None]
